FAERS Safety Report 19816853 (Version 1)
Quarter: 2021Q3

REPORT INFORMATION
  Report Type: Spontaneous
  Country: NL (occurrence: NL)
  Receive Date: 20210910
  Receipt Date: 20210910
  Transmission Date: 20211014
  Serious: Yes (Other)
  Sender: FDA-Public Use
  Company Number: NL-TEVA-2021-NL-1950325

PATIENT
  Age: 46 Year
  Sex: Male
  Weight: 70 kg

DRUGS (4)
  1. PREDNISOLON / BRAND NAME NOT SPECIFIED [Suspect]
     Active Substance: PREDNISOLONE
     Indication: PRODUCT USED FOR UNKNOWN INDICATION
     Dosage: THERAPY START DATE :ASKU,THERAPY END DATE :ASKU
     Route: 065
  2. MYCOFENOLAAT MOFETIL TABLET 500MG / CELLCEPT TABLET 500MG [Interacting]
     Active Substance: MYCOPHENOLATE MOFETIL
     Indication: PRODUCT USED FOR UNKNOWN INDICATION
     Dosage: 500 MG (MILLIGRAM),THERAPY START DATE :ASKU,THERAPY END DATE :ASKU
     Route: 065
  3. BOSWELLIA SERRATA [Interacting]
     Active Substance: DIETARY SUPPLEMENT\HERBALS\INDIAN FRANKINCENSE
     Indication: ARTHROPATHY
     Dosage: 1 DOSAGE FORMS DAILY;
     Route: 065
     Dates: start: 202103, end: 20210601
  4. BUDESONIDE CAPSULE MSR 3MG / BRAND NAME NOT SPECIFIED [Concomitant]
     Dosage: 3 MG (MILLIGRAM),THERAPY START DATE :ASKU,THERAPY END DATE :ASKU

REACTIONS (1)
  - Drug interaction [Recovering/Resolving]

NARRATIVE: CASE EVENT DATE: 20210601
